FAERS Safety Report 19726082 (Version 1)
Quarter: 2021Q3

REPORT INFORMATION
  Report Type: Spontaneous
  Country: US (occurrence: US)
  Receive Date: 20210819
  Receipt Date: 20210819
  Transmission Date: 20211014
  Serious: No
  Sender: FDA-Public Use
  Company Number: US-BEH-2021134885

PATIENT
  Age: 10 Year
  Sex: Male

DRUGS (3)
  1. HIZENTRA [Suspect]
     Active Substance: HUMAN IMMUNOGLOBULIN G
     Indication: MULTIPLE CONGENITAL ABNORMALITIES
  2. HIZENTRA [Suspect]
     Active Substance: HUMAN IMMUNOGLOBULIN G
     Indication: IMMUNODEFICIENCY
  3. HIZENTRA [Suspect]
     Active Substance: HUMAN IMMUNOGLOBULIN G
     Indication: INTERSTITIAL LUNG DISEASE
     Dosage: 14 GRAM, QOW
     Route: 058
     Dates: start: 20200106

REACTIONS (5)
  - Off label use [Unknown]
  - Nasopharyngitis [Unknown]
  - Malaise [Unknown]
  - Pyrexia [Unknown]
  - No adverse event [Unknown]

NARRATIVE: CASE EVENT DATE: 20210807
